FAERS Safety Report 20470466 (Version 10)
Quarter: 2023Q2

REPORT INFORMATION
  Report Type: Spontaneous
  Country: GB (occurrence: GB)
  Receive Date: 20220214
  Receipt Date: 20230602
  Transmission Date: 20230722
  Serious: Yes (Hospitalization, Other)
  Sender: FDA-Public Use
  Company Number: GB-ROCHE-3010458

PATIENT
  Age: 66 Year
  Sex: Female

DRUGS (138)
  1. XGEVA [Suspect]
     Active Substance: DENOSUMAB
     Indication: Breast cancer metastatic
     Dosage: 120 MILLIGRAM
     Route: 058
     Dates: start: 20201231
  2. TRASTUZUMAB [Suspect]
     Active Substance: TRASTUZUMAB
     Indication: Breast cancer metastatic
     Dosage: 600 MILLIGRAM
     Route: 058
     Dates: start: 20180202, end: 20180827
  3. EXEMESTANE [Suspect]
     Active Substance: EXEMESTANE
     Indication: Breast cancer metastatic
     Dosage: 25 MG/SQ.M, QD
     Route: 048
     Dates: start: 20200228
  4. LETROZOLE [Suspect]
     Active Substance: LETROZOLE
     Indication: Breast cancer metastatic
     Dosage: 2.5 MILLIGRAM, QD
     Route: 048
     Dates: start: 20180119, end: 20180126
  5. LETROZOLE [Suspect]
     Active Substance: LETROZOLE
     Dosage: 2.5 MILLIGRAM, QD
     Route: 048
     Dates: start: 20180525, end: 20181011
  6. PACLITAXEL [Suspect]
     Active Substance: PACLITAXEL
     Indication: Breast cancer metastatic
     Dosage: 156 MILLIGRAM, QWK
     Route: 042
     Dates: start: 20180202, end: 20180518
  7. ADO-TRASTUZUMAB EMTANSINE [Suspect]
     Active Substance: ADO-TRASTUZUMAB EMTANSINE
     Indication: Breast cancer metastatic
     Dosage: 420 MILLIGRAM, Q3WK
     Route: 042
     Dates: start: 20181019, end: 20190927
  8. CALCIUM CARBONATE\CHOLECALCIFEROL [Concomitant]
     Active Substance: CALCIUM CARBONATE\CHOLECALCIFEROL
     Dosage: UNK, BID
     Route: 048
     Dates: start: 20140127
  9. AMLODIPINE [Concomitant]
     Active Substance: AMLODIPINE BESYLATE
     Dosage: 10 MILLIGRAM, QD
     Route: 048
     Dates: end: 20180301
  10. AMOXICILLIN [Concomitant]
     Active Substance: AMOXICILLIN
     Indication: Stoma site haemorrhage
     Dosage: 1 GRAM, TID
     Route: 042
     Dates: start: 20190911, end: 20190915
  11. CARBOXYMETHYLCELLULOSE SODIUM [Concomitant]
     Active Substance: CARBOXYMETHYLCELLULOSE SODIUM
     Indication: Wound
     Dosage: UNK
     Route: 061
     Dates: start: 20181220, end: 20190116
  12. BENDROFLUMETHIAZIDE [Concomitant]
     Active Substance: BENDROFLUMETHIAZIDE
     Indication: Stoma site haemorrhage
     Dosage: 2.5 MILLIGRAM, QD
     Route: 048
     Dates: start: 20030114, end: 20190906
  13. BENDROFLUMETHIAZIDE [Concomitant]
     Active Substance: BENDROFLUMETHIAZIDE
     Dosage: 2.5 MILLIGRAM, QD
     Route: 048
     Dates: start: 20190908
  14. BENZYDAMINE [Concomitant]
     Active Substance: BENZYDAMINE
     Dosage: 5 MILLILITER, AS NECESSARY
     Route: 065
     Dates: start: 20180414
  15. CETIRIZINE [Concomitant]
     Active Substance: CETIRIZINE HYDROCHLORIDE
     Dosage: 10 MICROGRAM
     Route: 048
     Dates: start: 20080430, end: 20191119
  16. CHIROCAINE [Concomitant]
     Active Substance: LEVOBUPIVACAINE HYDROCHLORIDE
     Indication: Arthralgia
     Dosage: 20 MILLILITER
     Route: 008
     Dates: start: 20181220, end: 20181220
  17. CHLORHEXIDINE [Concomitant]
     Active Substance: CHLORHEXIDINE
     Dosage: 10 MILLILITER, AS NECESSARY
     Route: 050
     Dates: start: 20181019
  18. CHLORPHENIRAMINE MALEATE [Concomitant]
     Active Substance: CHLORPHENIRAMINE MALEATE
     Indication: Stoma site haemorrhage
     Dosage: 10 MILLIGRAM
     Route: 042
     Dates: start: 20180202, end: 20180518
  19. CHLORPHENIRAMINE MALEATE [Concomitant]
     Active Substance: CHLORPHENIRAMINE MALEATE
     Dosage: 4 MILLIGRAM, QD
     Route: 048
     Dates: start: 20190909, end: 20190915
  20. CHLORPHENIRAMINE MALEATE [Concomitant]
     Active Substance: CHLORPHENIRAMINE MALEATE
     Dosage: 4 MILLIGRAM, AS NECESSARY
     Route: 048
     Dates: start: 20190919
  21. CIPROFLOXACIN [Concomitant]
     Active Substance: CIPROFLOXACIN
     Indication: Urinary tract infection
     Dosage: 500 MILLIGRAM, BID
     Route: 048
     Dates: start: 201910, end: 20191009
  22. CIPROFLOXACIN [Concomitant]
     Active Substance: CIPROFLOXACIN
     Indication: Stoma site haemorrhage
     Dosage: 400 MILLIGRAM, BID
     Route: 042
     Dates: start: 20220124
  23. CLARITHROMYCIN [Concomitant]
     Active Substance: CLARITHROMYCIN
     Indication: Cellulitis
     Dosage: 500 MILLIGRAM, BID
     Route: 048
     Dates: start: 20190717, end: 20190724
  24. CLARITHROMYCIN [Concomitant]
     Active Substance: CLARITHROMYCIN
     Dosage: 500 MILLIGRAM, QD
     Route: 048
     Dates: start: 20190519
  25. CLARITHROMYCIN [Concomitant]
     Active Substance: CLARITHROMYCIN
     Dosage: 500 MILLIGRAM, BID
     Route: 048
     Dates: start: 20200519, end: 20200525
  26. CLARITHROMYCIN [Concomitant]
     Active Substance: CLARITHROMYCIN
     Dosage: 500 MILLIGRAM, BID
     Route: 048
     Dates: start: 20200901, end: 20200908
  27. CLARITHROMYCIN [Concomitant]
     Active Substance: CLARITHROMYCIN
     Dosage: 500 GRAM
     Route: 048
     Dates: start: 20210521
  28. ENOXAPARIN SODIUM [Concomitant]
     Active Substance: ENOXAPARIN SODIUM
     Indication: Oedema peripheral
     Dosage: 40 MILLIGRAM
     Route: 058
     Dates: start: 20180227, end: 20180228
  29. ENOXAPARIN SODIUM [Concomitant]
     Active Substance: ENOXAPARIN SODIUM
     Indication: Stoma site haemorrhage
     Dosage: 40 MILLIGRAM, QD
     Route: 058
     Dates: start: 20190526, end: 20190527
  30. AMOXICILLIN\CLAVULANATE POTASSIUM [Concomitant]
     Active Substance: AMOXICILLIN\CLAVULANATE POTASSIUM
     Indication: Stoma site haemorrhage
     Dosage: 625 MILLIGRAM, TID
     Route: 048
     Dates: start: 20190915, end: 20190916
  31. COCODAMOL [Concomitant]
     Active Substance: ACETAMINOPHEN\CODEINE PHOSPHATE
     Dosage: UNK
     Route: 048
     Dates: start: 20030104, end: 20180225
  32. COCODAMOL [Concomitant]
     Active Substance: ACETAMINOPHEN\CODEINE PHOSPHATE
     Dosage: UNK
     Route: 048
     Dates: start: 20180302
  33. CODEINE [Concomitant]
     Active Substance: CODEINE
     Indication: Oedema peripheral
     Dosage: 30 MILLIGRAM
     Route: 048
     Dates: start: 20180228, end: 20180301
  34. CODEINE [Concomitant]
     Active Substance: CODEINE
     Indication: Abdominal hernia obstructive
     Dosage: 30 MILLIGRAM, AS NECESSARY
     Route: 048
     Dates: start: 20191111, end: 20191111
  35. CODEINE [Concomitant]
     Active Substance: CODEINE
     Indication: Wound
  36. CHOLECALCIFEROL [Concomitant]
     Active Substance: CHOLECALCIFEROL
     Dosage: UNK, BID
     Route: 048
     Dates: start: 20180926
  37. CYCLIZINE [Concomitant]
     Active Substance: CYCLIZINE
     Dosage: 50 MILLIGRAM, AS NECESSARY
     Route: 048
     Dates: start: 20181102
  38. DEXAMETHASONE [Concomitant]
     Active Substance: DEXAMETHASONE
     Indication: Arthralgia
     Dosage: 8 MILLIGRAM
     Route: 042
     Dates: start: 20180202, end: 20180518
  39. DEXAMETHASONE [Concomitant]
     Active Substance: DEXAMETHASONE
     Dosage: 4 MILLIGRAM, QD
     Route: 048
     Dates: start: 20180916, end: 20181004
  40. DEXAMETHASONE [Concomitant]
     Active Substance: DEXAMETHASONE
     Dosage: 3 MILLIGRAM, QD
     Route: 048
     Dates: start: 20181008, end: 20181014
  41. DEXAMETHASONE [Concomitant]
     Active Substance: DEXAMETHASONE
     Dosage: 2 MILLIGRAM, QD
     Route: 048
     Dates: start: 20181015, end: 20181022
  42. DEXAMETHASONE [Concomitant]
     Active Substance: DEXAMETHASONE
     Dosage: 1 MILLIGRAM, QD
     Route: 048
     Dates: start: 20181023, end: 20181030
  43. DEXAMETHASONE [Concomitant]
     Active Substance: DEXAMETHASONE
     Dosage: 3.3 GRAM
     Route: 042
     Dates: start: 20181220, end: 20181220
  44. ISOPROPYL MYRISTATE\MINERAL OIL [Concomitant]
     Active Substance: ISOPROPYL MYRISTATE\MINERAL OIL
     Dosage: UNK, AS NECESSARY
     Route: 061
     Dates: start: 20180605, end: 20210329
  45. DOXAZOSIN [Concomitant]
     Active Substance: DOXAZOSIN MESYLATE
     Dosage: 2 MILLIGRAM, QD
     Route: 048
     Dates: start: 20040816, end: 20190906
  46. DOXYCYCLINE [Concomitant]
     Active Substance: DOXYCYCLINE
     Indication: Skin ulcer
     Dosage: 100 MILLIGRAM, BID
     Route: 048
     Dates: start: 20181113, end: 20181113
  47. DOXYCYCLINE [Concomitant]
     Active Substance: DOXYCYCLINE
     Dosage: 100 MILLIGRAM, QD
     Route: 048
     Dates: start: 20181114, end: 20181119
  48. ENOXAPARIN [Concomitant]
     Active Substance: ENOXAPARIN
     Indication: Arthralgia
     Dosage: 4 MILLIGRAM, AS NECESSARY
     Route: 042
     Dates: start: 20181119, end: 20181122
  49. ENOXAPARIN [Concomitant]
     Active Substance: ENOXAPARIN
     Dosage: 40 MILLIGRAM, QD
     Route: 058
     Dates: start: 20181220, end: 20190107
  50. ENOXAPARIN [Concomitant]
     Active Substance: ENOXAPARIN
     Dosage: 40 MILLIGRAM, QD
     Route: 058
     Dates: start: 20211102, end: 20211104
  51. EUMOVATE [Concomitant]
     Active Substance: CLOBETASONE BUTYRATE
     Dosage: UNK, BID
     Route: 061
     Dates: start: 20190403
  52. FERROUS FUMARATE [Concomitant]
     Active Substance: FERROUS FUMARATE
     Indication: Stoma site haemorrhage
     Dosage: 210 MILLIGRAM, TID
     Route: 048
     Dates: start: 20190730
  53. FEXOFENADINE [Concomitant]
     Active Substance: FEXOFENADINE HYDROCHLORIDE
     Indication: Abdominal hernia obstructive
     Dosage: 180 MILLIGRAM, QD
     Route: 048
     Dates: start: 20190403, end: 20190503
  54. FEXOFENADINE [Concomitant]
     Active Substance: FEXOFENADINE HYDROCHLORIDE
     Dosage: 180 MILLIGRAM, QD
     Route: 048
     Dates: start: 201911, end: 20191119
  55. FLUCONAZOLE [Concomitant]
     Active Substance: FLUCONAZOLE
     Dosage: 100 MILLIGRAM, QD
     Route: 048
     Dates: start: 20180125, end: 20180128
  56. FOLIC ACID [Concomitant]
     Active Substance: FOLIC ACID
     Dosage: 5 MILLIGRAM, QD
     Route: 048
     Dates: start: 20030207
  57. FUROSEMIDE [Concomitant]
     Active Substance: FUROSEMIDE
     Indication: Oedema peripheral
     Dosage: 50 MILLIGRAM
     Route: 042
     Dates: start: 20180225, end: 20180225
  58. FUROSEMIDE [Concomitant]
     Active Substance: FUROSEMIDE
     Dosage: 20 MILLIGRAM, QD
     Route: 048
     Dates: start: 20200507, end: 20200614
  59. FUROSEMIDE [Concomitant]
     Active Substance: FUROSEMIDE
     Dosage: 40 MILLIGRAM, QD
     Route: 048
     Dates: start: 20200615
  60. BETAMETHASONE VALERATE\FUSIDIC ACID [Concomitant]
     Active Substance: BETAMETHASONE VALERATE\FUSIDIC ACID
     Dosage: UNK, BID
     Route: 061
     Dates: start: 20201201
  61. GENTAMICIN [Concomitant]
     Active Substance: GENTAMICIN
     Indication: Stoma site haemorrhage
     Dosage: 400 MILLIGRAM
     Route: 042
     Dates: start: 20181119, end: 20181119
  62. GENTAMICIN [Concomitant]
     Active Substance: GENTAMICIN
     Dosage: 400 MILLIGRAM
     Route: 042
     Dates: start: 20190526, end: 20190526
  63. GENTAMICIN [Concomitant]
     Active Substance: GENTAMICIN
     Dosage: 400 MILLIGRAM
     Route: 042
     Dates: start: 20190528, end: 20190528
  64. GENTAMICIN [Concomitant]
     Active Substance: GENTAMICIN
     Dosage: 400 MILLIGRAM
     Route: 042
     Dates: start: 20190911, end: 20190911
  65. GENTAMICIN [Concomitant]
     Active Substance: GENTAMICIN
     Dosage: 400 MILLIGRAM
     Route: 042
     Dates: start: 20190913, end: 20190913
  66. HEPARIN SODIUM [Concomitant]
     Active Substance: HEPARIN SODIUM
     Dosage: 5 MILLILITER
     Route: 042
     Dates: start: 20190502, end: 20191106
  67. HYDROXOCOBALAMIN [Concomitant]
     Active Substance: HYDROXOCOBALAMIN
     Dosage: 1 MILLIGRAM
     Route: 030
     Dates: start: 20020115, end: 20200506
  68. HYDROXOCOBALAMIN [Concomitant]
     Active Substance: HYDROXOCOBALAMIN
     Dosage: UNK
     Route: 030
     Dates: start: 20201231
  69. ISOPROPYL MYRISTATE [Concomitant]
     Active Substance: ISOPROPYL MYRISTATE
     Dosage: UNK UNK, AS NECESSARY
     Route: 061
     Dates: start: 20210329
  70. LEVOFLOXACIN [Concomitant]
     Active Substance: LEVOFLOXACIN
     Indication: Oedema peripheral
     Dosage: 500 MILLIGRAM, BID
     Route: 042
     Dates: start: 20180225, end: 20180228
  71. LEVOFLOXACIN [Concomitant]
     Active Substance: LEVOFLOXACIN
     Dosage: 500 MILLIGRAM
     Route: 048
     Dates: start: 20180301, end: 20180301
  72. METOCLOPRAMIDE [Concomitant]
     Active Substance: METOCLOPRAMIDE
     Indication: Stoma site haemorrhage
     Dosage: 10 MILLIGRAM, AS NECESSARY
     Route: 048
     Dates: start: 20180202, end: 20180518
  73. METOCLOPRAMIDE [Concomitant]
     Active Substance: METOCLOPRAMIDE
     Dosage: 10 MILLIGRAM
     Route: 048
     Dates: start: 20190909, end: 20190909
  74. METOCLOPRAMIDE [Concomitant]
     Active Substance: METOCLOPRAMIDE
     Dosage: 10 MILLIGRAM, QD
     Route: 048
     Dates: start: 201910
  75. METRONIDAZOLE [Concomitant]
     Active Substance: METRONIDAZOLE
     Indication: Stoma site haemorrhage
     Dosage: 500 MILLIGRAM, TID
     Route: 042
     Dates: start: 20181119, end: 20181121
  76. METRONIDAZOLE [Concomitant]
     Active Substance: METRONIDAZOLE
     Dosage: 400 MILLIGRAM, TID
     Route: 048
     Dates: start: 20181122, end: 20181123
  77. METRONIDAZOLE [Concomitant]
     Active Substance: METRONIDAZOLE
     Dosage: 500 MILLIGRAM, TID
     Route: 042
     Dates: start: 20190526, end: 201905
  78. METRONIDAZOLE [Concomitant]
     Active Substance: METRONIDAZOLE
     Dosage: 500 MILLIGRAM, TID
     Route: 048
     Dates: start: 20190911, end: 20190915
  79. METRONIDAZOLE [Concomitant]
     Active Substance: METRONIDAZOLE
     Dosage: 400 MILLIGRAM
     Route: 048
     Dates: start: 20190916, end: 20190916
  80. METRONIDAZOLE [Concomitant]
     Active Substance: METRONIDAZOLE
     Dosage: 400 MILLIGRAM
     Route: 048
     Dates: start: 20190918, end: 20190918
  81. METRONIDAZOLE [Concomitant]
     Active Substance: METRONIDAZOLE
     Dosage: 400 MILLIGRAM, TID
     Route: 048
     Dates: start: 201910, end: 20191009
  82. MORPHINE [Concomitant]
     Active Substance: MORPHINE
     Indication: Arthralgia
     Dosage: 12 MILLILITER
     Route: 042
     Dates: start: 20181220, end: 20181220
  83. SODIUM CHLORIDE [Concomitant]
     Active Substance: SODIUM CHLORIDE
     Indication: Stoma site haemorrhage
     Dosage: 500 MILLILITER
     Route: 042
     Dates: start: 20181122, end: 20181123
  84. SODIUM CHLORIDE [Concomitant]
     Active Substance: SODIUM CHLORIDE
     Dosage: 500 MILLILITER
     Route: 042
     Dates: start: 20181123, end: 20181123
  85. SODIUM CHLORIDE [Concomitant]
     Active Substance: SODIUM CHLORIDE
     Dosage: 500 MILLILITER
     Route: 042
     Dates: start: 20190523, end: 20190523
  86. SODIUM CHLORIDE [Concomitant]
     Active Substance: SODIUM CHLORIDE
     Dosage: 500 MILLILITER
     Route: 042
     Dates: start: 20190726, end: 20190726
  87. SODIUM CHLORIDE [Concomitant]
     Active Substance: SODIUM CHLORIDE
     Dosage: 3500 MILLILITER
     Route: 042
     Dates: start: 20190910, end: 20190912
  88. SODIUM CHLORIDE [Concomitant]
     Active Substance: SODIUM CHLORIDE
     Dosage: UNK
     Route: 042
     Dates: start: 20190920, end: 20190921
  89. SODIUM CHLORIDE [Concomitant]
     Active Substance: SODIUM CHLORIDE
     Dosage: 500 MILLILITER
     Route: 042
     Dates: start: 20200225, end: 20200225
  90. OMEPRAZOLE [Concomitant]
     Active Substance: OMEPRAZOLE
     Indication: Stoma site haemorrhage
     Dosage: 20 MILLIGRAM, QD
     Route: 048
     Dates: start: 20091014, end: 20191106
  91. OMEPRAZOLE [Concomitant]
     Active Substance: OMEPRAZOLE
     Dosage: 40 MILLIGRAM, BID
     Route: 048
     Dates: start: 20191107, end: 20200205
  92. OMEPRAZOLE [Concomitant]
     Active Substance: OMEPRAZOLE
     Dosage: 40 MILLIGRAM, BID
     Route: 048
     Dates: start: 20200219
  93. ONDANSETRON [Concomitant]
     Active Substance: ONDANSETRON
     Indication: Arthralgia
     Dosage: 4 MILLIGRAM, AS NECESSARY
     Route: 042
     Dates: start: 20181119, end: 20181122
  94. ONDANSETRON [Concomitant]
     Active Substance: ONDANSETRON
     Indication: Stoma site haemorrhage
     Dosage: 4 MILLIGRAM, AS NECESSARY
     Route: 048
     Dates: start: 20181216, end: 20190107
  95. ONDANSETRON [Concomitant]
     Active Substance: ONDANSETRON
     Dosage: 4 MILLIGRAM
     Route: 048
     Dates: start: 20190920, end: 20190920
  96. ONDANSETRON [Concomitant]
     Active Substance: ONDANSETRON
     Dosage: 4 MILLIGRAM
     Route: 048
     Dates: start: 20200214, end: 20200214
  97. OXYCODONE [Concomitant]
     Active Substance: OXYCODONE
     Indication: Arthralgia
     Dosage: UNK UNK, BID
     Route: 048
     Dates: start: 20180916, end: 20181002
  98. OXYCODONE [Concomitant]
     Active Substance: OXYCODONE
     Dosage: 5 MILLIGRAM
     Route: 048
     Dates: start: 20180922, end: 20181002
  99. OXYCODONE [Concomitant]
     Active Substance: OXYCODONE
     Dosage: 5 MILLIGRAM, AS NECESSARY
     Route: 048
     Dates: start: 20181003
  100. OXYCODONE [Concomitant]
     Active Substance: OXYCODONE
     Dosage: UNK UNK, BID
     Route: 048
     Dates: start: 20181003
  101. ACETAMINOPHEN [Concomitant]
     Active Substance: ACETAMINOPHEN
     Indication: Oedema peripheral
     Dosage: 1 GRAM, AS NECESSARY
     Route: 048
     Dates: start: 20180225, end: 20180301
  102. ACETAMINOPHEN [Concomitant]
     Active Substance: ACETAMINOPHEN
     Indication: Arthralgia
     Dosage: 1 GRAM, AS NECESSARY
     Route: 048
     Dates: start: 20180916, end: 20181002
  103. ACETAMINOPHEN [Concomitant]
     Active Substance: ACETAMINOPHEN
     Dosage: 1 GRAM, AS NECESSARY
     Route: 048
     Dates: start: 20181003
  104. ACETAMINOPHEN [Concomitant]
     Active Substance: ACETAMINOPHEN
     Dosage: 1 GRAM
     Route: 042
     Dates: start: 20181220, end: 20181220
  105. PENTASA [Concomitant]
     Active Substance: MESALAMINE
     Dosage: UNK, QD
     Route: 048
     Dates: start: 20131217
  106. CHLORPHENIRAMINE MALEATE [Concomitant]
     Active Substance: CHLORPHENIRAMINE MALEATE
     Dosage: 4 MILLIGRAM, AS NECESSARY
     Route: 048
     Dates: start: 20180125
  107. PLASMA-LYTE 148 [Concomitant]
     Active Substance: MAGNESIUM CHLORIDE\POTASSIUM CHLORIDE\SODIUM ACETATE\SODIUM CHLORIDE\SODIUM GLUCONATE
     Indication: Arthralgia
     Dosage: 100 MILLILITER
     Route: 042
     Dates: start: 20181220, end: 20181220
  108. PROPOFOL [Concomitant]
     Active Substance: PROPOFOL
     Indication: Arthralgia
     Dosage: 150 MILLIGRAM
     Route: 042
     Dates: start: 20181220, end: 20181220
  109. RANITIDINE [Concomitant]
     Active Substance: RANITIDINE
     Dosage: 50 MILLIGRAM
     Route: 042
     Dates: start: 20180202, end: 20180518
  110. RANITIDINE [Concomitant]
     Active Substance: RANITIDINE
     Dosage: 150 MILLIGRAM
     Route: 050
     Dates: start: 20181123, end: 20181123
  111. POTASSIUM BICARBONATE\POTASSIUM CHLORIDE [Concomitant]
     Active Substance: POTASSIUM BICARBONATE\POTASSIUM CHLORIDE
     Indication: Arthralgia
     Dosage: UNK, TID
     Route: 048
     Dates: start: 20181216, end: 20181218
  112. POTASSIUM BICARBONATE\POTASSIUM CHLORIDE [Concomitant]
     Active Substance: POTASSIUM BICARBONATE\POTASSIUM CHLORIDE
     Indication: Stoma site haemorrhage
     Dosage: UNK, TID
     Route: 048
     Dates: start: 20190730, end: 20190730
  113. POTASSIUM BICARBONATE\POTASSIUM CHLORIDE [Concomitant]
     Active Substance: POTASSIUM BICARBONATE\POTASSIUM CHLORIDE
     Dosage: UNK, TID
     Route: 048
     Dates: start: 20190911, end: 20190912
  114. POTASSIUM BICARBONATE\POTASSIUM CHLORIDE [Concomitant]
     Active Substance: POTASSIUM BICARBONATE\POTASSIUM CHLORIDE
     Dosage: UNK, TID
     Route: 048
     Dates: start: 20211103, end: 20211105
  115. SILVER NITRATE [Concomitant]
     Active Substance: SILVER NITRATE
     Indication: Stoma site haemorrhage
     Dosage: UNK
     Route: 061
     Dates: start: 20180329, end: 20180329
  116. SILVER NITRATE [Concomitant]
     Active Substance: SILVER NITRATE
     Dosage: UNK
     Route: 061
     Dates: start: 20190510, end: 20190510
  117. SILVER NITRATE [Concomitant]
     Active Substance: SILVER NITRATE
     Dosage: UNK
     Route: 061
     Dates: start: 20190522, end: 20190522
  118. SILVER NITRATE [Concomitant]
     Active Substance: SILVER NITRATE
     Dosage: UNK
     Route: 061
     Dates: start: 20190527, end: 20190527
  119. SILVER NITRATE [Concomitant]
     Active Substance: SILVER NITRATE
     Dosage: UNK
     Route: 061
     Dates: start: 20200225, end: 20200225
  120. TERBUTALINE [Concomitant]
     Active Substance: TERBUTALINE
     Dosage: 500 MICROGRAM, QID
     Route: 065
     Dates: start: 20030108
  121. TRANEXAMIC ACID [Concomitant]
     Active Substance: TRANEXAMIC ACID
     Indication: Stoma site haemorrhage
     Dosage: 1 GRAM
     Route: 042
     Dates: start: 20181220, end: 20181220
  122. TRANEXAMIC ACID [Concomitant]
     Active Substance: TRANEXAMIC ACID
     Indication: Arthralgia
     Dosage: 1 GRAM, TID
     Route: 048
     Dates: start: 20190804, end: 20190806
  123. TRANEXAMIC ACID [Concomitant]
     Active Substance: TRANEXAMIC ACID
     Dosage: 1 GRAM, TID
     Route: 054
     Dates: start: 20190909, end: 20190911
  124. TRANEXAMIC ACID [Concomitant]
     Active Substance: TRANEXAMIC ACID
     Dosage: 1000 MILLIGRAM, TID
     Route: 048
     Dates: start: 20200501, end: 20200504
  125. TRIMETHOPRIM [Concomitant]
     Active Substance: TRIMETHOPRIM
     Indication: Pyrexia
     Dosage: 200 MILLIGRAM, BID
     Route: 048
     Dates: start: 20190813, end: 20190815
  126. VANCOMYCIN [Concomitant]
     Active Substance: VANCOMYCIN
     Indication: Urinary tract infection
     Dosage: 2000 MILLIGRAM
     Route: 042
     Dates: start: 20181119
  127. VANCOMYCIN [Concomitant]
     Active Substance: VANCOMYCIN
     Dosage: 500 MILLIGRAM
     Route: 042
     Dates: start: 20181120, end: 20181122
  128. VANCOMYCIN [Concomitant]
     Active Substance: VANCOMYCIN
     Dosage: 2000 MILLIGRAM
     Route: 042
     Dates: start: 20190526, end: 20190526
  129. VANCOMYCIN [Concomitant]
     Active Substance: VANCOMYCIN
     Dosage: 500 MILLIGRAM, BID
     Route: 042
     Dates: start: 20190527
  130. CLOTRIMAZOLE [Concomitant]
     Active Substance: CLOTRIMAZOLE
     Dosage: UNK UNK, AS NECESSARY
     Route: 061
     Dates: start: 20180125
  131. INFLUENZA VIRUS VACCINE [Concomitant]
     Active Substance: INFLUENZA VIRUS VACCINE
     Dosage: 0.5 MILLILITER
     Route: 030
     Dates: start: 20211106, end: 20211106
  132. MINERAL OIL [Concomitant]
     Active Substance: MINERAL OIL
     Indication: Dry skin
     Dosage: UNK UNK, AS NECESSARY
     Route: 061
     Dates: start: 20210329
  133. OXYGEN [Concomitant]
     Active Substance: OXYGEN
     Indication: Arthralgia
     Dosage: UNK
     Route: 065
     Dates: start: 20181220, end: 20181220
  134. QUININE SULFATE [Concomitant]
     Active Substance: QUININE SULFATE
     Dosage: 200 MILLIGRAM, QD
     Route: 048
     Dates: start: 20040219
  135. SUGAMMADEX [Concomitant]
     Active Substance: SUGAMMADEX
     Indication: Arthralgia
     Dosage: 200 MILLIGRAM
     Route: 042
     Dates: start: 20181220, end: 20181220
  136. TEICOPLANIN [Concomitant]
     Active Substance: TEICOPLANIN
     Indication: Arthralgia
     Dosage: 400 MILLIGRAM
     Route: 042
     Dates: start: 20181220, end: 20181224
  137. MINERAL OIL [Concomitant]
     Active Substance: MINERAL OIL
     Indication: Dry skin
     Dosage: UNK UNK, AS NECESSARY
     Route: 061
     Dates: start: 20180406
  138. ZOLEDRONIC ACID [Concomitant]
     Active Substance: ZOLEDRONIC ACID
     Dosage: 4 MILLIGRAM
     Route: 042
     Dates: start: 20181019, end: 20190705

REACTIONS (2)
  - Pancytopenia [Not Recovered/Not Resolved]
  - Neutropenic sepsis [Not Recovered/Not Resolved]

NARRATIVE: CASE EVENT DATE: 20220123
